FAERS Safety Report 17638042 (Version 2)
Quarter: 2020Q2

REPORT INFORMATION
  Report Type: Report from Study
  Country: None (occurrence: US)
  Receive Date: 20200407
  Receipt Date: 20200507
  Transmission Date: 20200713
  Serious: No
  Sender: FDA-Public Use
  Company Number: US-BIOVITRUM-2020US1057

PATIENT
  Sex: Male

DRUGS (1)
  1. KINERET [Suspect]
     Active Substance: ANAKINRA
     Indication: RHEUMATOID ARTHRITIS
     Route: 058
     Dates: start: 20200211, end: 20200403

REACTIONS (7)
  - Chronic obstructive pulmonary disease [Unknown]
  - Influenza like illness [Unknown]
  - Injection site warmth [Unknown]
  - Condition aggravated [Unknown]
  - Injection site erythema [Unknown]
  - Dyspnoea [Unknown]
  - Injection site pain [Unknown]
